FAERS Safety Report 7083004-2 (Version None)
Quarter: 2010Q4

REPORT INFORMATION
  Report Type: 
  Country: None (occurrence: None)
  Receive Date: 20101026
  Receipt Date: 20101014
  Transmission Date: 20110411
  Serious: Yes (Disabling, Other)
  Sender: FDA-Public Use
  Company Number: 2010AP002207

PATIENT
  Age: 60 Year
  Sex: Female
  Weight: 95.2 kg

DRUGS (11)
  1. LISINOPRIL AND HYDROCHLOROTHIAZIDE [Suspect]
     Dosage: PO
     Route: 048
  2. LOVASTATIN [Suspect]
     Dosage: 40 MG;QD;PO
     Route: 048
  3. LYRICA [Suspect]
     Indication: NEURALGIA
     Dosage: 50 MG;QD;PO ; 50 MG;BID;PO
     Route: 048
     Dates: start: 20100801
  4. LASIX [Suspect]
     Indication: FLUID RETENTION
     Dosage: 25 MG;QM;PO
     Route: 048
  5. PREDNISONE [Suspect]
     Indication: POLYMYALGIA RHEUMATICA
     Dosage: 10 MG;AM;PO ; 5 MG;PM;PO
     Route: 048
     Dates: start: 20070101
  6. PREDNISONE [Suspect]
     Indication: POLYMYALGIA RHEUMATICA
     Dosage: 10 MG;AM;PO ; 5 MG;PM;PO
     Route: 048
     Dates: start: 20070101
  7. PEXEVA [Suspect]
     Indication: ASTHENIA
  8. PEXEVA [Suspect]
     Indication: FATIGUE
  9. FOSAMAX [Suspect]
     Indication: CALCIUM DEFICIENCY
     Dosage: 70 MG;QW;PO
     Route: 048
  10. SYNTHROID [Suspect]
     Indication: HYPOTHYROIDISM
     Dosage: 274 UG ; 68.5 UG
  11. REQUIP [Suspect]
     Dosage: 1 MG;QD;PO
     Route: 048

REACTIONS (7)
  - ACTIVITIES OF DAILY LIVING IMPAIRED [None]
  - DIZZINESS [None]
  - DYSKINESIA [None]
  - FEAR [None]
  - SYSTEMIC LUPUS ERYTHEMATOSUS [None]
  - THINKING ABNORMAL [None]
  - TREMOR [None]
